FAERS Safety Report 23970621 (Version 1)
Quarter: 2024Q2

REPORT INFORMATION
  Report Type: Spontaneous
  Country: JP (occurrence: JP)
  Receive Date: 20240613
  Receipt Date: 20240613
  Transmission Date: 20240717
  Serious: Yes (Hospitalization, Other)
  Sender: FDA-Public Use
  Company Number: JP-shionogi-202404190

PATIENT
  Age: 44 Year
  Sex: Female

DRUGS (8)
  1. CYCLOPHOSPHAMIDE [Suspect]
     Active Substance: CYCLOPHOSPHAMIDE
     Indication: Breast cancer stage II
     Dosage: AC THERAPY (ENDOXAN)
     Route: 065
  2. CYCLOPHOSPHAMIDE [Suspect]
     Active Substance: CYCLOPHOSPHAMIDE
     Dosage: 2ND COURSE OF AC THERAPY (ENDOXAN)
     Route: 065
  3. CYCLOPHOSPHAMIDE [Suspect]
     Active Substance: CYCLOPHOSPHAMIDE
     Dosage: 3RD COURSE, AC THERAPY CONTINUED WITH THE DOSE REDUCED TO 80%
     Route: 065
  4. CYCLOPHOSPHAMIDE [Suspect]
     Active Substance: CYCLOPHOSPHAMIDE
     Dosage: UNDERWENT TOTAL OF 4 COURSES OF AC THERAPY AS SCHEDULED
     Route: 065
  5. DOXORUBICIN [Suspect]
     Active Substance: DOXORUBICIN
     Indication: Breast cancer stage II
     Dosage: AC THERAPY
     Route: 065
  6. DOXORUBICIN [Suspect]
     Active Substance: DOXORUBICIN
     Dosage: 2ND COURSE OF AC THERAPY
     Route: 065
  7. DOXORUBICIN [Suspect]
     Active Substance: DOXORUBICIN
     Dosage: 3RD COURSE, AC THERAPY CONTINUED WITH THE DOSE REDUCED TO 80%
     Route: 065
  8. DOXORUBICIN [Suspect]
     Active Substance: DOXORUBICIN
     Dosage: UNDERWENT TOTAL OF 4 COURSES OF AC THERAPY AS SCHEDULED
     Route: 065

REACTIONS (3)
  - Small intestine ulcer [Recovering/Resolving]
  - Faeces discoloured [Recovering/Resolving]
  - Abdominal discomfort [Recovering/Resolving]
